FAERS Safety Report 9670685 (Version 1)
Quarter: 2013Q4

REPORT INFORMATION
  Report Type: Spontaneous
  Country: JP (occurrence: JP)
  Receive Date: 20131106
  Receipt Date: 20131106
  Transmission Date: 20140711
  Serious: Yes (Other)
  Sender: FDA-Public Use
  Company Number: JP-AMGEN-JPNSP2013077430

PATIENT
  Age: 64 Year
  Sex: Male
  Weight: 59 kg

DRUGS (10)
  1. GRAN [Suspect]
     Indication: PERIPHERAL BLOOD STEM CELL APHERESIS
     Dosage: 300 MUG, BID
     Route: 058
     Dates: start: 20130928
  2. ALOSITOL [Concomitant]
     Indication: HYPERURICAEMIA
     Dosage: 100 MG, QD
     Route: 048
  3. TAKEPRON [Concomitant]
     Indication: GASTRIC ULCER
     Dosage: 15 MG, QD
     Route: 048
     Dates: start: 20130430
  4. EURODIN                            /00425901/ [Concomitant]
     Indication: INSOMNIA
     Dosage: 1 MG, QD
     Route: 048
     Dates: start: 20130502
  5. LENDORMIN [Concomitant]
     Indication: INSOMNIA
     Dosage: 0.25 MG, QD
     Route: 048
     Dates: start: 20130419
  6. BAKTAR [Concomitant]
     Indication: INFECTION PROPHYLAXIS
     Dosage: UNK, QD
     Route: 048
     Dates: start: 20130821
  7. MYSLEE [Concomitant]
     Indication: INSOMNIA
     Dosage: 5 MG, QD
     Route: 048
     Dates: start: 20130807
  8. DEPAS [Concomitant]
     Indication: ANXIETY DISORDER
     Dosage: 1 MG, QD
     Route: 048
     Dates: start: 20130427
  9. CALCICOL [Concomitant]
     Indication: HYPOCALCAEMIA
     Dosage: 25 ML, UNK
     Route: 042
     Dates: start: 20131001, end: 20131002
  10. CALONAL [Concomitant]
     Indication: BACK PAIN
     Dosage: 300 MG, UNK
     Route: 048
     Dates: start: 20130929, end: 20130930

REACTIONS (1)
  - Iritis [Recovering/Resolving]
